FAERS Safety Report 15740220 (Version 3)
Quarter: 2019Q3

REPORT INFORMATION
  Report Type: Spontaneous
  Country: US (occurrence: US)
  Receive Date: 20181219
  Receipt Date: 20190709
  Transmission Date: 20191004
  Serious: Yes (Hospitalization, Other)
  Sender: FDA-Public Use
  Company Number: US-PARI RESPIRATORY EQUIPMENT, INC.-2018PAR00087

PATIENT
  Sex: Female
  Weight: 49.5 kg

DRUGS (12)
  1. PULMOZYME [Concomitant]
     Active Substance: DORNASE ALFA
     Dosage: 2.5 MG, 1X/DAY VIA NEBULIZER FOR 30 DAYS
  2. HYPERSAL [Concomitant]
     Active Substance: SODIUM CHLORIDE
  3. PROAIR HFA [Concomitant]
     Active Substance: ALBUTEROL SULFATE
     Dosage: 2 PUFFS, Q 4 HOURS
  4. PREDINSOLONE [Concomitant]
     Dosage: 1 DROP, 1X/DAY IN THE LEFT EYE
     Route: 047
  5. CREON [Concomitant]
     Active Substance: PANCRELIPASE AMYLASE\PANCRELIPASE LIPASE\PANCRELIPASE PROTEASE
     Dosage: 4 CAPSULES WITH EACH MEAL
  6. PROAIR HFA [Concomitant]
     Active Substance: ALBUTEROL SULFATE
     Dosage: 2 PUFFS, 2X/DAY AS NEEDED
  7. CREON [Concomitant]
     Active Substance: PANCRELIPASE AMYLASE\PANCRELIPASE LIPASE\PANCRELIPASE PROTEASE
     Dosage: 3 CAPSULES WITH EACH SNACK
  8. MULTIVITAMIN (^M.V.W.^) [Concomitant]
     Dosage: 1 CAPSULES, 2X/DAY
     Route: 048
  9. COMBIGAN [Concomitant]
     Active Substance: BRIMONIDINE TARTRATE\TIMOLOL MALEATE
     Dosage: 1 DROP, 2X/DAY IN THE LEFT EYE
     Route: 047
  10. SODIUM CHLORIDE 7% [Concomitant]
     Active Substance: SODIUM CHLORIDE
     Dosage: 4 ML, 2X/DAY EVERY 12 HOURS
  11. KITABIS PAK [Suspect]
     Active Substance: TOBRAMYCIN
     Indication: CYSTIC FIBROSIS
     Dosage: 300 MG, 2X/DAY FOR 28 DAYS ON AND 28 DAYS OFF
     Dates: start: 20181121
  12. URSODIOL. [Concomitant]
     Active Substance: URSODIOL
     Dosage: 300 MG, 2X/DAY
     Route: 048

REACTIONS (4)
  - Staphylococcal infection [Not Recovered/Not Resolved]
  - Infective pulmonary exacerbation of cystic fibrosis [Recovered/Resolved]
  - Deafness neurosensory [Unknown]
  - Pseudomonas infection [Unknown]

NARRATIVE: CASE EVENT DATE: 2018
